FAERS Safety Report 5499791-0 (Version None)
Quarter: 2007Q4

REPORT INFORMATION
  Report Type: 
  Country: None (occurrence: None)
  Receive Date: 20071026
  Receipt Date: 20071016
  Transmission Date: 20080405
  Serious: Yes (Hospitalization)
  Sender: FDA-Public Use
  Company Number: JP-PFIZER INC-2007073669

PATIENT
  Sex: Female
  Weight: 73 kg

DRUGS (12)
  1. SOLU-MEDROL [Suspect]
     Indication: LARYNGEAL OEDEMA
     Route: 042
     Dates: start: 20070826, end: 20070826
  2. UNASYN [Suspect]
     Indication: PNEUMONIA ASPIRATION
     Dosage: DAILY DOSE:4.5GRAM
     Route: 042
     Dates: start: 20070823, end: 20070827
  3. DIPRIVAN [Suspect]
     Route: 042
     Dates: start: 20070823, end: 20070824
  4. AMLODIPINE [Concomitant]
     Indication: HYPERTENSION
     Route: 048
  5. MICARDIS [Concomitant]
     Route: 048
  6. PANTOSIN [Concomitant]
     Route: 048
  7. SEPAMIT [Concomitant]
     Route: 048
  8. IMIDAPRIL [Concomitant]
     Route: 048
  9. PERDIPINE [Concomitant]
     Indication: HYPERTENSION
     Route: 042
     Dates: start: 20070823, end: 20070825
  10. ASPARA K [Concomitant]
     Route: 042
     Dates: start: 20070823, end: 20070824
  11. FAMOTIDINE [Concomitant]
     Indication: GASTRIC ULCER
     Route: 042
     Dates: start: 20070823, end: 20070824
  12. GLYCEOL [Concomitant]
     Indication: BRAIN OEDEMA
     Route: 042

REACTIONS (1)
  - HEPATIC FUNCTION ABNORMAL [None]
